FAERS Safety Report 19948863 (Version 1)
Quarter: 2021Q4

REPORT INFORMATION
  Report Type: Spontaneous
  Country: ES (occurrence: ES)
  Receive Date: 20211013
  Receipt Date: 20211013
  Transmission Date: 20220303
  Serious: Yes (Other)
  Sender: FDA-Public Use
  Company Number: None

PATIENT
  Age: 51 Year
  Sex: Male
  Weight: 68 kg

DRUGS (2)
  1. OLANZAPINE [Suspect]
     Active Substance: OLANZAPINE
     Indication: Delirium
     Dosage: 2.5 COMP A-CE
     Route: 065
     Dates: start: 20150210
  2. CARVEDILOL-RATIOPHARM [Concomitant]
     Indication: Essential hypertension
     Dosage: 6.25 MG, A-DE
     Route: 048
     Dates: start: 20191009

REACTIONS (2)
  - Hyperprolactinaemia [Not Recovered/Not Resolved]
  - Gynaecomastia [Not Recovered/Not Resolved]

NARRATIVE: CASE EVENT DATE: 20210921
